FAERS Safety Report 15621703 (Version 1)
Quarter: 2018Q4

REPORT INFORMATION
  Report Type: Spontaneous
  Country: JP (occurrence: JP)
  Receive Date: 20181115
  Receipt Date: 20181115
  Transmission Date: 20190205
  Serious: Yes (Hospitalization)
  Sender: FDA-Public Use
  Company Number: JP-TEVA-2018-JP-974007

PATIENT
  Age: 12 Year
  Sex: Female

DRUGS (3)
  1. CLINDAMYCIN. [Suspect]
     Active Substance: CLINDAMYCIN
     Indication: BRONCHIOLITIS
     Route: 065
  2. ACETAMINOPHEN. [Suspect]
     Active Substance: ACETAMINOPHEN
     Indication: BRONCHIOLITIS
     Route: 065
  3. CEFTRIAXONE. [Suspect]
     Active Substance: CEFTRIAXONE
     Indication: BRONCHIOLITIS
     Route: 065

REACTIONS (2)
  - Drug effect incomplete [Unknown]
  - Tubulointerstitial nephritis and uveitis syndrome [Recovering/Resolving]
